FAERS Safety Report 6609781-X (Version None)
Quarter: 2010Q1

REPORT INFORMATION
  Report Type: 
  Country: None (occurrence: None)
  Receive Date: 20100302
  Receipt Date: 20100216
  Transmission Date: 20100710
  Serious: Yes (Hospitalization, Other)
  Sender: FDA-Public Use
  Company Number: PHHY2010GB06317

PATIENT
  Sex: Male
  Weight: 138 kg

DRUGS (3)
  1. CLOZARIL [Suspect]
     Indication: SCHIZOPHRENIA
     Dosage: 300 MG, QD
     Dates: start: 20070427
  2. AMISULPRIDE [Concomitant]
     Indication: SCHIZOPHRENIA
     Dosage: 400 MG, BID
     Route: 048
     Dates: start: 20081020
  3. FLUOXETINE [Concomitant]
     Indication: DEPRESSION

REACTIONS (5)
  - DEPRESSION [None]
  - DIARRHOEA [None]
  - GASTROENTERITIS VIRAL [None]
  - METABOLIC SYNDROME [None]
  - VOMITING [None]
